FAERS Safety Report 7796800-0 (Version None)
Quarter: 2011Q4

REPORT INFORMATION
  Report Type: 
  Country: None (occurrence: None)
  Receive Date: 20111005
  Receipt Date: 20110927
  Transmission Date: 20120403
  Serious: Yes (Hospitalization, Other)
  Sender: FDA-Public Use
  Company Number: US-JNJFOC-20110807148

PATIENT
  Sex: Male

DRUGS (7)
  1. RISPERDAL CONSTA [Suspect]
     Route: 030
     Dates: start: 20110501, end: 20110101
  2. DEPAKOTE [Suspect]
     Indication: PRODUCT USED FOR UNKNOWN INDICATION
     Route: 065
     Dates: start: 20101001, end: 20101101
  3. RISPERIDONE [Suspect]
     Indication: BIPOLAR DISORDER
     Route: 048
     Dates: start: 20101001, end: 20101101
  4. RISPERDAL CONSTA [Suspect]
     Route: 030
     Dates: start: 20110101
  5. INVEGA SUSTENNA [Suspect]
     Indication: BIPOLAR DISORDER
     Route: 030
     Dates: start: 20110401, end: 20110501
  6. RISPERIDONE [Suspect]
     Route: 048
     Dates: start: 20080101, end: 20090101
  7. RISPERDAL CONSTA [Suspect]
     Indication: BIPOLAR DISORDER
     Route: 030
     Dates: start: 20101101, end: 20110401

REACTIONS (15)
  - ABNORMAL BEHAVIOUR [None]
  - OBSESSIVE-COMPULSIVE DISORDER [None]
  - AGORAPHOBIA [None]
  - BEDRIDDEN [None]
  - SUICIDAL IDEATION [None]
  - DEPRESSION [None]
  - NONSPECIFIC REACTION [None]
  - PARANOIA [None]
  - DRUG INEFFECTIVE [None]
  - WEIGHT INCREASED [None]
  - FEELING ABNORMAL [None]
  - BACK PAIN [None]
  - MOBILITY DECREASED [None]
  - SUICIDE ATTEMPT [None]
  - FATIGUE [None]
